FAERS Safety Report 11587209 (Version 1)
Quarter: 2015Q3

REPORT INFORMATION
  Report Type: Spontaneous
  Country: US (occurrence: US)
  Receive Date: 20150916
  Receipt Date: 20150916
  Transmission Date: 20151125
  Serious: No
  Sender: FDA-Public Use
  Company Number: US-ELI_LILLY_AND_COMPANY-US200802003034

PATIENT
  Sex: Female

DRUGS (2)
  1. FORTEO [Suspect]
     Active Substance: TERIPARATIDE
     Indication: OSTEOPOROSIS
     Route: 058
     Dates: start: 2005, end: 200712
  2. BONIVA [Concomitant]
     Active Substance: IBANDRONATE SODIUM
     Dosage: UNK, MONTHLY (1/M)

REACTIONS (1)
  - Bone density decreased [Unknown]
